FAERS Safety Report 19186726 (Version 1)
Quarter: 2021Q2

REPORT INFORMATION
  Report Type: Spontaneous
  Country: US (occurrence: US)
  Receive Date: 20210427
  Receipt Date: 20210427
  Transmission Date: 20210717
  Serious: No
  Sender: FDA-Public Use
  Company Number: US-009507513-2104USA002070

PATIENT
  Age: 31 Year
  Sex: Female

DRUGS (2)
  1. PRINIVIL [Suspect]
     Active Substance: LISINOPRIL
     Dosage: 10 MILLIGRAM, DAILY
     Route: 048
     Dates: start: 2021
  2. PRINIVIL [Suspect]
     Active Substance: LISINOPRIL
     Indication: SWELLING FACE
     Dosage: 5 MILLIGRAM
     Route: 048
     Dates: start: 2021

REACTIONS (1)
  - Off label use [Unknown]

NARRATIVE: CASE EVENT DATE: 2021
